FAERS Safety Report 21117597 (Version 4)
Quarter: 2022Q3

REPORT INFORMATION
  Report Type: Spontaneous
  Country: FR (occurrence: FR)
  Receive Date: 20220722
  Receipt Date: 20220810
  Transmission Date: 20221027
  Serious: Yes (Other)
  Sender: FDA-Public Use
  Company Number: FR-CELLTRION INC.-2022FR010809

PATIENT

DRUGS (1)
  1. INFLIXIMAB [Suspect]
     Active Substance: INFLIXIMAB
     Indication: Crohn^s disease
     Dosage: UNK
     Dates: start: 201108

REACTIONS (6)
  - Hepatic cytolysis [Unknown]
  - Acute hepatitis B [Recovered/Resolved]
  - Hepatitis B [Recovered/Resolved]
  - Hepatitis B reactivation [Unknown]
  - Vaccination failure [Unknown]
  - Alanine aminotransferase increased [Unknown]
